FAERS Safety Report 4941393-6 (Version None)
Quarter: 2006Q1

REPORT INFORMATION
  Report Type: 
  Country: None (occurrence: None)
  Receive Date: 20060313
  Receipt Date: 20060301
  Transmission Date: 20060701
  Serious: Yes (Hospitalization)
  Sender: FDA-Public Use
  Company Number: US-MERCK-0603USA00467

PATIENT
  Age: 56 Year
  Sex: Female
  Weight: 91 kg

DRUGS (1)
  1. VIOXX [Suspect]
     Indication: PAIN
     Route: 048
     Dates: start: 19990101, end: 20000101

REACTIONS (4)
  - BREAST MASS [None]
  - CARDIAC VALVE DISEASE [None]
  - CAROTID ENDARTERECTOMY [None]
  - PRESCRIBED OVERDOSE [None]
